FAERS Safety Report 5645441-X (Version None)
Quarter: 2008Q1

REPORT INFORMATION
  Report Type: 
  Country: None (occurrence: None)
  Receive Date: 20080229
  Receipt Date: 20070403
  Transmission Date: 20080703
  Serious: No
  Sender: FDA-Public Use
  Company Number: US-BRISTOL-MYERS SQUIBB COMPANY-13737283

PATIENT
  Age: 62 Year
  Sex: Female

DRUGS (12)
  1. TAXOL [Suspect]
     Indication: ENDOMETRIAL CANCER
     Route: 042
  2. CARBOPLATIN [Suspect]
     Route: 042
  3. PAXIL [Concomitant]
  4. HYDROCHLOROTHIAZIDE [Concomitant]
  5. EVISTA [Concomitant]
  6. MULTI-VITAMIN [Concomitant]
  7. POTASSIUM CHLORIDE [Concomitant]
  8. COMPAZINE [Concomitant]
  9. BENADRYL [Concomitant]
     Route: 042
  10. PEPCID [Concomitant]
     Route: 042
  11. ALOXI [Concomitant]
     Route: 042
  12. DECADRON [Concomitant]
     Route: 042

REACTIONS (1)
  - TYPE IV HYPERSENSITIVITY REACTION [None]
